FAERS Safety Report 9120661 (Version 1)
Quarter: 2013Q1

REPORT INFORMATION
  Report Type: Spontaneous
  Country: US (occurrence: US)
  Receive Date: 20130226
  Receipt Date: 20130226
  Transmission Date: 20140127
  Serious: No
  Sender: FDA-Public Use
  Company Number: US-009507513-1302USA010737

PATIENT
  Age: 60 Year
  Sex: Female

DRUGS (6)
  1. NASONEX [Suspect]
     Indication: NASAL CONGESTION
     Dosage: 50 MICROGRAM, BID 2 PUFFS TWICE A DAY
     Route: 045
     Dates: start: 201212
  2. DIOVAN [Concomitant]
     Dosage: UNK MG, UNK
  3. ALTACE [Concomitant]
     Dosage: UNK MG, UNK
  4. LEXAPRO [Concomitant]
     Dosage: UNK MG, UNK
  5. VITAMIN D (UNSPECIFIED) [Concomitant]
     Dosage: UNK IU, UNK
  6. UBIDECARENONE [Concomitant]

REACTIONS (2)
  - Vertigo [Recovered/Resolved]
  - Ear disorder [Unknown]
